FAERS Safety Report 15779793 (Version 2)
Quarter: 2019Q1

REPORT INFORMATION
  Report Type: Report from Study
  Country: CA (occurrence: CA)
  Receive Date: 20190102
  Receipt Date: 20190201
  Transmission Date: 20190417
  Serious: Yes (Hospitalization, Other)
  Sender: FDA-Public Use
  Company Number: CA-BRISTOL-MYERS SQUIBB COMPANY-BMS-2017-035197

PATIENT
  Age: 81 Year
  Sex: Female

DRUGS (1)
  1. ABATACEPT [Suspect]
     Active Substance: ABATACEPT
     Indication: RHEUMATOID ARTHRITIS
     Dosage: 500 MG, Q4WK
     Route: 042
     Dates: start: 20070723

REACTIONS (6)
  - Localised infection [Recovering/Resolving]
  - Aortic aneurysm [Unknown]
  - Fall [Unknown]
  - Skin ulcer [Unknown]
  - Skin laceration [Recovered/Resolved]
  - Gallbladder cancer [Unknown]

NARRATIVE: CASE EVENT DATE: 20170418
